FAERS Safety Report 5381165-4 (Version None)
Quarter: 2007Q3

REPORT INFORMATION
  Report Type: 
  Country: None (occurrence: None)
  Receive Date: 20070706
  Receipt Date: 20070626
  Transmission Date: 20080115
  Serious: Yes (Death)
  Sender: FDA-Public Use
  Company Number: JP-PFIZER INC-2007052121

PATIENT
  Sex: Male

DRUGS (6)
  1. IRINOTECAN HCL [Suspect]
     Indication: SMALL CELL LUNG CANCER STAGE UNSPECIFIED
     Route: 042
     Dates: start: 20070608, end: 20070608
  2. PARAPLATIN [Suspect]
     Indication: SMALL CELL LUNG CANCER STAGE UNSPECIFIED
     Route: 042
     Dates: start: 20070608, end: 20070608
  3. SLOW-K [Concomitant]
     Indication: HYPOKALAEMIA
     Route: 048
  4. ALDACTONE [Concomitant]
     Indication: HYPOKALAEMIA
     Route: 048
  5. PURSENNID [Concomitant]
     Indication: CONSTIPATION
     Dosage: TEXT:2T (2 DOSAGE FORMS)
     Route: 048
     Dates: start: 20070610
  6. FRANDOL [Concomitant]
     Indication: HYPERTENSION
     Dosage: TEXT:1 SHEET (1 DOSAGE FORM)
     Route: 062
     Dates: start: 20070529

REACTIONS (3)
  - LEUKOPENIA [None]
  - PULMONARY HAEMORRHAGE [None]
  - THROMBOCYTOPENIA [None]
